FAERS Safety Report 6844997-9 (Version None)
Quarter: 2010Q3

REPORT INFORMATION
  Report Type: 
  Country: None (occurrence: None)
  Receive Date: 20100715
  Receipt Date: 20070905
  Transmission Date: 20110219
  Serious: Yes (Other)
  Sender: FDA-Public Use
  Company Number: US-PFIZER INC-2007057863

PATIENT
  Sex: Female
  Weight: 80.7 kg

DRUGS (5)
  1. CHANTIX [Suspect]
     Indication: SMOKING CESSATION THERAPY
     Dates: start: 20070621, end: 20070820
  2. MACROBID [Suspect]
     Indication: URINARY TRACT INFECTION
     Dates: start: 20070701
  3. ACETYLSALICYLIC ACID [Concomitant]
  4. PREVACID [Concomitant]
     Dosage: 30MG,DAILY
     Route: 048
     Dates: start: 20070604
  5. ATIVAN [Concomitant]
     Route: 048
     Dates: start: 20070621

REACTIONS (8)
  - CONSTIPATION [None]
  - CRYING [None]
  - GINGIVAL PAIN [None]
  - MENTAL DISORDER [None]
  - MOOD SWINGS [None]
  - MYALGIA [None]
  - NAUSEA [None]
  - URINARY TRACT INFECTION [None]
